FAERS Safety Report 19128923 (Version 1)
Quarter: 2021Q2

REPORT INFORMATION
  Report Type: Spontaneous
  Country: US (occurrence: US)
  Receive Date: 20210413
  Receipt Date: 20210413
  Transmission Date: 20210717
  Serious: No
  Sender: FDA-Public Use
  Company Number: US-009507513-2104USA002293

PATIENT

DRUGS (8)
  1. ISENTRESS [Suspect]
     Active Substance: RALTEGRAVIR POTASSIUM
     Indication: ANTIRETROVIRAL THERAPY
     Dosage: DOSE: 800 MILLIGRAM
     Route: 048
  2. ZIDOVUDINE. [Suspect]
     Active Substance: ZIDOVUDINE
     Indication: ANTIRETROVIRAL THERAPY
     Dosage: DAILY DOSE 2
     Route: 042
  3. TENOFOVIR DISOPROXIL FUMARATE. [Suspect]
     Active Substance: TENOFOVIR DISOPROXIL FUMARATE
     Indication: ANTIRETROVIRAL THERAPY
     Dosage: DAILY DOSE 300
     Route: 048
  4. DARUNAVIR [Suspect]
     Active Substance: DARUNAVIR
     Indication: ANTIRETROVIRAL THERAPY
     Dosage: DAILY DOSE 800
     Route: 048
  5. DARUNAVIR [Suspect]
     Active Substance: DARUNAVIR
     Dosage: DAILY DOSE 1200
     Route: 048
  6. RITONAVIR. [Suspect]
     Active Substance: RITONAVIR
     Indication: ANTIRETROVIRAL THERAPY
     Dosage: DAILY DOSE 100
     Route: 048
  7. RITONAVIR. [Suspect]
     Active Substance: RITONAVIR
     Dosage: DAILY DOSE 200
     Route: 048
  8. ZIDOVUDINE. [Suspect]
     Active Substance: ZIDOVUDINE
     Dosage: DAILY DOSE 1
     Route: 042

REACTIONS (2)
  - Foetal exposure during pregnancy [Unknown]
  - Low birth weight baby [Unknown]
